FAERS Safety Report 6007728-0 (Version None)
Quarter: 2008Q4

REPORT INFORMATION
  Report Type: 
  Country: None (occurrence: None)
  Receive Date: 20081217
  Receipt Date: 20080522
  Transmission Date: 20090506
  Serious: No
  Sender: FDA-Public Use
  Company Number: US-ASTRAZENECA-2008UW10511

PATIENT
  Age: 72 Year
  Sex: Female
  Weight: 54.9 kg

DRUGS (2)
  1. CRESTOR [Suspect]
     Indication: BLOOD CHOLESTEROL
     Dosage: STOPPED FOR 3 WEEKS
     Route: 048
     Dates: start: 20080301, end: 20080501
  2. CRESTOR [Suspect]
     Route: 048
     Dates: start: 20080519

REACTIONS (1)
  - PAIN [None]
